FAERS Safety Report 4476510-8 (Version None)
Quarter: 2004Q4

REPORT INFORMATION
  Report Type: 
  Country: None (occurrence: None)
  Receive Date: 20041013
  Receipt Date: 20041004
  Transmission Date: 20050328
  Serious: Yes (Death, Hospitalization)
  Sender: FDA-Public Use
  Company Number: US_031198689

PATIENT
  Age: 63 Year
  Sex: Female
  Weight: 82 kg

DRUGS (16)
  1. PEMETREXED [Suspect]
     Indication: MESOTHELIOMA
     Dosage: 925 MG/OTHER
     Dates: start: 20031015, end: 20040126
  2. CISPLATIN [Suspect]
     Indication: MESOTHELIOMA
     Dosage: 139 MG/OTHER
     Dates: start: 20031015, end: 20040126
  3. VITAMIN B-12 [Concomitant]
  4. ARANESP [Concomitant]
  5. DURAGESIC [Concomitant]
  6. COMPAZINE [Concomitant]
  7. DARVOCET-N 100 [Concomitant]
  8. FOLIC ACID [Concomitant]
  9. DIGOXIN [Concomitant]
  10. PEPCID [Concomitant]
  11. OXYCONTIN [Concomitant]
  12. TEMAZEPAM [Concomitant]
  13. ALPRAZOLAM [Concomitant]
  14. EFFEXOR [Concomitant]
  15. POTASSIUM CHLORIDE [Concomitant]
  16. COMPAZINE [Concomitant]

REACTIONS (33)
  - ANAEMIA [None]
  - ATELECTASIS [None]
  - ATRIAL TACHYCARDIA [None]
  - BLOOD ALBUMIN DECREASED [None]
  - BLOOD ALKALINE PHOSPHATASE INCREASED [None]
  - BLOOD CALCIUM DECREASED [None]
  - BLOOD CHLORIDE DECREASED [None]
  - BLOOD UREA INCREASED [None]
  - BODY TEMPERATURE DECREASED [None]
  - BRONCHIAL CARCINOMA [None]
  - DEHYDRATION [None]
  - DERMATITIS CONTACT [None]
  - DIARRHOEA [None]
  - ELECTROCARDIOGRAM ST SEGMENT ABNORMAL [None]
  - ELECTROCARDIOGRAM T WAVE ABNORMAL [None]
  - FEBRILE NEUTROPENIA [None]
  - GASTROENTERITIS [None]
  - GRANULOCYTE COUNT DECREASED [None]
  - HAEMATOTOXICITY [None]
  - HEART RATE INCREASED [None]
  - HYPOKALAEMIA [None]
  - HYPOMAGNESAEMIA [None]
  - MALIGNANT NEOPLASM PROGRESSION [None]
  - MESOTHELIOMA [None]
  - PAIN [None]
  - PLEURAL FIBROSIS [None]
  - PULMONARY HILUM MASS [None]
  - RESPIRATORY ARREST [None]
  - RESPIRATORY FAILURE [None]
  - RESPIRATORY RATE INCREASED [None]
  - SINUS ARRHYTHMIA [None]
  - THROMBOCYTOPENIA [None]
  - WHITE BLOOD CELL COUNT DECREASED [None]
